FAERS Safety Report 9977722 (Version 1)
Quarter: 2014Q1

REPORT INFORMATION
  Report Type: Report from Study
  Country: US (occurrence: US)
  Receive Date: 20140306
  Receipt Date: 20140306
  Transmission Date: 20141002
  Serious: No
  Sender: FDA-Public Use
  Company Number: US-ABBVIE-13P-163-1163434-00

PATIENT
  Sex: Male
  Weight: 97.61 kg

DRUGS (4)
  1. HUMIRA [Suspect]
     Indication: PSORIATIC ARTHROPATHY
     Dates: start: 200803, end: 201211
  2. HUMIRA [Suspect]
     Dates: start: 20131015
  3. NAPROXEN [Concomitant]
     Indication: ARTHRALGIA
  4. IBUPROFEN [Concomitant]
     Indication: ARTHRALGIA

REACTIONS (3)
  - Joint swelling [Recovering/Resolving]
  - Arthralgia [Recovering/Resolving]
  - Drug ineffective [Recovering/Resolving]
